FAERS Safety Report 24841197 (Version 1)
Quarter: 2025Q1

REPORT INFORMATION
  Report Type: Spontaneous
  Country: US (occurrence: US)
  Receive Date: 20250114
  Receipt Date: 20250114
  Transmission Date: 20250409
  Serious: Yes (Hospitalization, Other)
  Sender: INSUD PHARMA
  Company Number: US-INSUD PHARMA-2501US00104

PATIENT

DRUGS (1)
  1. TESTOSTERONE [Suspect]
     Active Substance: TESTOSTERONE
     Indication: Product used for unknown indication
     Route: 065

REACTIONS (5)
  - Hepatic angiosarcoma [Not Recovered/Not Resolved]
  - Hepatosplenomegaly [Not Recovered/Not Resolved]
  - Renal impairment [Not Recovered/Not Resolved]
  - Spontaneous bacterial peritonitis [Unknown]
  - Multiple organ dysfunction syndrome [Not Recovered/Not Resolved]
